FAERS Safety Report 20991018 (Version 3)
Quarter: 2022Q3

REPORT INFORMATION
  Report Type: Report from Study
  Country: CA (occurrence: CA)
  Receive Date: 20220622
  Receipt Date: 20220929
  Transmission Date: 20221026
  Serious: Yes (Hospitalization)
  Sender: FDA-Public Use
  Company Number: CA-BRISTOL-MYERS SQUIBB COMPANY-2022-057045

PATIENT
  Age: 65 Year
  Sex: Female
  Weight: 52 kg

DRUGS (5)
  1. NIVOLUMAB [Suspect]
     Active Substance: NIVOLUMAB
     Indication: Colorectal cancer
     Dosage: MOST RECENT DOSE ON 31-MAY-2022
     Route: 042
     Dates: start: 20220301
  2. BETAMETHASONE VAL [Concomitant]
     Indication: Rash
     Dosage: 0.1 % CREAM,TOPICALLY TO RASH ON ARMS + LEGS TWICE DAILY
     Route: 061
     Dates: start: 20220611, end: 20220617
  3. MAGNESIUM SULFATE [Concomitant]
     Active Substance: MAGNESIUM SULFATE
     Indication: Product used for unknown indication
     Route: 042
     Dates: start: 20220613
  4. POTASSIUM PHOSPHATE [Concomitant]
     Active Substance: POTASSIUM PHOSPHATE
     Indication: Product used for unknown indication
     Dosage: 22MEGK,15 MMOL PHOS) OVER 2H IV 3 DAYS
     Route: 042
     Dates: start: 20220613
  5. HYDROXYZINE [Concomitant]
     Active Substance: HYDROXYZINE HYDROCHLORIDE
     Indication: Product used for unknown indication
     Dosage: 25 MG CAPSULE PO 4 TIMES DAILY PRN ( FROM 13 TO 16 JUNE 2022)
     Route: 048
     Dates: start: 20220613, end: 20220616

REACTIONS (1)
  - Dehydration [Recovered/Resolved]

NARRATIVE: CASE EVENT DATE: 20220610
